FAERS Safety Report 6550573-8 (Version None)
Quarter: 2010Q1

REPORT INFORMATION
  Report Type: 
  Country: None (occurrence: None)
  Receive Date: 20100122
  Receipt Date: 20100122
  Transmission Date: 20100710
  Serious: Yes (Other)
  Sender: FDA-Public Use
  Company Number: None

PATIENT
  Age: 54 Year
  Sex: Female
  Weight: 87.5442 kg

DRUGS (1)
  1. TYLENOL (CAPLET) [Suspect]
     Indication: MULTIPLE SCLEROSIS
     Dosage: 500MG TO 1000MG DAILY PO
     Route: 048
     Dates: start: 20100108, end: 20100115

REACTIONS (6)
  - ABDOMINAL PAIN UPPER [None]
  - DIARRHOEA [None]
  - DIZZINESS [None]
  - HYPERCHLORHYDRIA [None]
  - MIGRAINE [None]
  - PRODUCT QUALITY ISSUE [None]
